FAERS Safety Report 7347196-X (Version None)
Quarter: 2011Q1

REPORT INFORMATION
  Report Type: 
  Country: None (occurrence: None)
  Receive Date: 20110311
  Receipt Date: 20110307
  Transmission Date: 20110831
  Serious: Yes (Hospitalization, Disabling, Other)
  Sender: FDA-Public Use
  Company Number: US-PFIZER INC-2010176612

PATIENT
  Sex: Female

DRUGS (4)
  1. CHANTIX [Suspect]
     Indication: SMOKING CESSATION THERAPY
     Dosage: STARTER PACK AND CONTINUOUS MONTH PACK
     Dates: start: 20071101, end: 20080115
  2. TERCONAZOLE [Concomitant]
     Indication: ANTIFUNGAL TREATMENT
     Dosage: UNK
     Dates: start: 20030101, end: 20100101
  3. CYCLOBENZAPRINE [Concomitant]
     Indication: MUSCLE RELAXANT THERAPY
     Dosage: UNK
     Dates: start: 20060101
  4. OXYCODONE AND ACETAMINOPHEN [Concomitant]
     Indication: ANALGESIC THERAPY
     Dosage: UNK
     Dates: start: 20050101, end: 20090101

REACTIONS (11)
  - DEPRESSION [None]
  - VISUAL IMPAIRMENT [None]
  - HEADACHE [None]
  - SUICIDAL IDEATION [None]
  - CEREBROVASCULAR ACCIDENT [None]
  - HEMIPLEGIA [None]
  - COGNITIVE DISORDER [None]
  - VASCULITIS [None]
  - AMNESIA [None]
  - NIGHTMARE [None]
  - ANXIETY [None]
